FAERS Safety Report 4865535-6 (Version None)
Quarter: 2005Q4

REPORT INFORMATION
  Report Type: 
  Country: None (occurrence: None)
  Receive Date: 20051223
  Receipt Date: 20051221
  Transmission Date: 20060501
  Serious: Yes (Congenital Anomaly)
  Sender: FDA-Public Use
  Company Number: ES-GLAXOSMITHKLINE-B0404617A

PATIENT

DRUGS (5)
  1. CLAMOXYL [Suspect]
     Indication: RESPIRATORY TRACT INFECTION
     Dosage: 2.2G THREE TIMES PER DAY
     Dates: start: 20050110, end: 20050112
  2. SYNALAR NASAL [Suspect]
     Indication: RESPIRATORY TRACT INFECTION
     Dosage: 4DROP PER DAY
     Dates: start: 20050110, end: 20050115
  3. BISOLVON [Suspect]
     Indication: RESPIRATORY TRACT INFECTION
     Dosage: 11DROP PER DAY
     Dates: start: 20050110, end: 20050112
  4. PARACETAMOL [Suspect]
     Indication: RESPIRATORY TRACT INFECTION
     Dosage: 3G THREE TIMES PER DAY
     Dates: start: 20050110, end: 20050112
  5. CODEINE PHOSPHATE [Suspect]
     Indication: RESPIRATORY TRACT INFECTION
     Dosage: 15ML THREE TIMES PER DAY
     Dates: start: 20050110, end: 20050112

REACTIONS (4)
  - CONGENITAL ANOMALY [None]
  - DRUG EXPOSURE DURING PREGNANCY [None]
  - INFECTION [None]
  - URINARY TRACT MALFORMATION [None]
